FAERS Safety Report 15541055 (Version 1)
Quarter: 2018Q4

REPORT INFORMATION
  Report Type: Spontaneous
  Country: US (occurrence: US)
  Receive Date: 20181023
  Receipt Date: 20181023
  Transmission Date: 20190205
  Serious: No
  Sender: FDA-Public Use
  Company Number: US-ABBVIE-18P-163-2514519-00

PATIENT
  Sex: Female

DRUGS (1)
  1. ORILISSA [Suspect]
     Active Substance: ELAGOLIX SODIUM
     Indication: ENDOMETRIOSIS
     Route: 048
     Dates: start: 2018, end: 2018

REACTIONS (3)
  - Vomiting [Not Recovered/Not Resolved]
  - Endometriosis [Not Recovered/Not Resolved]
  - Nausea [Not Recovered/Not Resolved]
